FAERS Safety Report 24305812 (Version 1)
Quarter: 2024Q3

REPORT INFORMATION
  Report Type: Spontaneous
  Country: JP (occurrence: JP)
  Receive Date: 20240911
  Receipt Date: 20240911
  Transmission Date: 20241016
  Serious: Yes (Other)
  Sender: RANBAXY
  Company Number: JP-SUN PHARMACEUTICAL INDUSTRIES LTD-2024RR-466924

PATIENT
  Age: 91 Year
  Sex: Female

DRUGS (2)
  1. MEMANTINE [Suspect]
     Active Substance: MEMANTINE
     Indication: Dementia Alzheimer^s type
     Dosage: 10 MILLIGRAM, DAILY
     Route: 048
  2. HERBALS [Suspect]
     Active Substance: HERBALS
     Indication: Dementia Alzheimer^s type
     Dosage: 2.5 GRAM, DAILY
     Route: 048

REACTIONS (2)
  - Drug ineffective [Unknown]
  - Treatment noncompliance [Unknown]
